FAERS Safety Report 9772429 (Version 1)
Quarter: 2013Q4

REPORT INFORMATION
  Report Type: Spontaneous
  Country: US (occurrence: US)
  Receive Date: 20131219
  Receipt Date: 20131219
  Transmission Date: 20140711
  Serious: Yes (Other)
  Sender: FDA-Public Use
  Company Number: US-INCYTE CORPORATION-2013IN002977

PATIENT
  Age: 62 Year
  Sex: Female

DRUGS (8)
  1. JAKAFI [Suspect]
     Indication: MYELOFIBROSIS
     Dosage: 5 MG, BID
     Route: 048
     Dates: start: 201202
  2. VALTREX [Concomitant]
  3. ZANTAC [Concomitant]
  4. SERTRALINE [Concomitant]
  5. SYNTHROID [Concomitant]
  6. ALPRAZOLAM [Concomitant]
  7. PREDNISONE [Concomitant]
  8. AMICAR [Concomitant]

REACTIONS (1)
  - Myelodysplastic syndrome [Unknown]
